FAERS Safety Report 9244569 (Version 1)
Quarter: 2013Q2

REPORT INFORMATION
  Report Type: Spontaneous
  Country: BR (occurrence: BR)
  Receive Date: 20130422
  Receipt Date: 20130422
  Transmission Date: 20140414
  Serious: Yes (Other)
  Sender: FDA-Public Use
  Company Number: PHHY2013BR038328

PATIENT
  Sex: Male

DRUGS (1)
  1. RITALINA [Suspect]
     Dosage: 10 MG, UNK

REACTIONS (3)
  - Autism [Unknown]
  - Performance status decreased [Unknown]
  - Psychomotor hyperactivity [Unknown]
